FAERS Safety Report 10031677 (Version 1)
Quarter: 2014Q1

REPORT INFORMATION
  Report Type: Spontaneous
  Country: US (occurrence: US)
  Receive Date: 20140324
  Receipt Date: 20140324
  Transmission Date: 20141002
  Serious: No
  Sender: FDA-Public Use
  Company Number: US-PFIZER INC-2014083621

PATIENT
  Age: 42 Year
  Sex: Female
  Weight: 91.61 kg

DRUGS (1)
  1. PRISTIQ [Suspect]
     Indication: DEPRESSION
     Dosage: UNK
     Dates: start: 20140318, end: 201403

REACTIONS (1)
  - Withdrawal syndrome [Unknown]
